FAERS Safety Report 24076040 (Version 1)
Quarter: 2024Q3

REPORT INFORMATION
  Report Type: Spontaneous
  Country: US (occurrence: US)
  Receive Date: 20240710
  Receipt Date: 20240710
  Transmission Date: 20241017
  Serious: Yes (Other)
  Sender: JOHNSON AND JOHNSON
  Company Number: US-JNJFOC-20240706038

PATIENT
  Age: 82 Year
  Sex: Male

DRUGS (6)
  1. ERLEADA [Suspect]
     Active Substance: APALUTAMIDE
     Indication: Prostate cancer
     Route: 065
     Dates: start: 20240313, end: 20240625
  2. ERLEADA [Suspect]
     Active Substance: APALUTAMIDE
     Route: 065
  3. ORGOVYX [Suspect]
     Active Substance: RELUGOLIX
     Indication: Prostate cancer
     Route: 048
     Dates: start: 20240313, end: 20240313
  4. ORGOVYX [Suspect]
     Active Substance: RELUGOLIX
  5. LEVOTHYROXINE [Concomitant]
     Active Substance: LEVOTHYROXINE\LEVOTHYROXINE SODIUM
  6. FIRMAGON [Concomitant]
     Active Substance: DEGARELIX ACETATE
     Indication: Prostate cancer

REACTIONS (11)
  - Metastases to lymph nodes [Unknown]
  - Prostate cancer [Unknown]
  - Sleep disorder [Recovering/Resolving]
  - Hot flush [Recovering/Resolving]
  - Dizziness [Unknown]
  - Libido decreased [Unknown]
  - Nocturia [Unknown]
  - Feeling abnormal [Unknown]
  - Asthenia [Unknown]
  - Incorrect product dosage form administered [Not Recovered/Not Resolved]
  - Chills [Recovering/Resolving]

NARRATIVE: CASE EVENT DATE: 20240313
